FAERS Safety Report 15068010 (Version 1)
Quarter: 2018Q2

REPORT INFORMATION
  Report Type: Report from Study
  Country: NL (occurrence: NL)
  Receive Date: 20180626
  Receipt Date: 20180626
  Transmission Date: 20180711
  Serious: Yes (Other)
  Sender: FDA-Public Use
  Company Number: PHHY2018NL028219

PATIENT
  Sex: Female

DRUGS (1)
  1. ZOMETA [Suspect]
     Active Substance: ZOLEDRONIC ACID
     Indication: BREAST CANCER
     Dosage: 4MG/100 ML (1X PER 26 WEEKS)
     Route: 042

REACTIONS (2)
  - Inappropriate schedule of drug administration [Unknown]
  - Erysipelas [Recovering/Resolving]
